FAERS Safety Report 8088218-0 (Version None)
Quarter: 2012Q1

REPORT INFORMATION
  Report Type: 
  Country: None (occurrence: None)
  Receive Date: 20120131
  Receipt Date: 20120125
  Transmission Date: 20120608
  Serious: Yes (Hospitalization)
  Sender: FDA-Public Use
  Company Number: US-BIOGENIDEC-2012BI003057

PATIENT
  Age: 25 Year
  Sex: Female

DRUGS (2)
  1. TYSABRI [Suspect]
     Indication: MULTIPLE SCLEROSIS
     Route: 042
     Dates: start: 20101129
  2. NARCOTICS (NOS) [Concomitant]
     Indication: PAIN
     Dates: end: 20111001

REACTIONS (2)
  - MULTIPLE SCLEROSIS RELAPSE [None]
  - PAIN [None]
